FAERS Safety Report 4620415-6 (Version None)
Quarter: 2005Q1

REPORT INFORMATION
  Report Type: 
  Country: None (occurrence: None)
  Receive Date: 20050324
  Receipt Date: 20050311
  Transmission Date: 20050727
  Serious: Yes (Other)
  Sender: FDA-Public Use
  Company Number: HQWYE059711MAR05

PATIENT
  Age: 80 Year
  Sex: Male

DRUGS (3)
  1. PANTOZOL                        (PANTOPRAZOLE, DELAYED RELEASE) [Suspect]
     Indication: HELICOBACTER INFECTION
     Dosage: 40 MG 2X PER 1 DAY
  2. AMOXICILLIN [Suspect]
     Indication: HELICOBACTER INFECTION
     Dosage: 1000 MG 2X PER 1 DAY
  3. CLARITHROMYCIN [Suspect]
     Indication: HELICOBACTER INFECTION
     Dosage: 500 MG 2X PER 1 DAY

REACTIONS (5)
  - ANAL INFLAMMATION [None]
  - GASTROINTESTINAL DISORDER [None]
  - INFLAMMATION [None]
  - MUCOSAL INFLAMMATION [None]
  - STOMATITIS [None]
